FAERS Safety Report 17376451 (Version 1)
Quarter: 2020Q1

REPORT INFORMATION
  Report Type: Spontaneous
  Country: US (occurrence: US)
  Receive Date: 20200205
  Receipt Date: 20200205
  Transmission Date: 20200409
  Serious: Yes (Other)
  Sender: FDA-Public Use
  Company Number: None

PATIENT
  Age: 62 Year
  Sex: Male
  Weight: 72 kg

DRUGS (14)
  1. OXYCODONE HCL 30MG [Suspect]
     Active Substance: OXYCODONE HYDROCHLORIDE
     Indication: PAIN
     Dosage: ?          QUANTITY:1 TABLET(S);?
     Route: 048
     Dates: start: 20190820, end: 20200205
  2. VERAPAMIL ER 240MG TABLETS [Concomitant]
     Active Substance: VERAPAMIL HYDROCHLORIDE
  3. ASPIRIN 81MG [Concomitant]
     Active Substance: ASPIRIN
  4. VASCEPA [Concomitant]
     Active Substance: ICOSAPENT ETHYL
  5. IFATROPRIUM BROMIDE SPRAY [Concomitant]
  6. FENTANYL TD 75 [Concomitant]
  7. ZYRTEC [Concomitant]
     Active Substance: CETIRIZINE HYDROCHLORIDE
  8. OXYCODONE 30MG [Concomitant]
     Active Substance: OXYCODONE
  9. PRASUGREL 10MG TABLETS [Concomitant]
     Active Substance: PRASUGREL
  10. ZETIA [Concomitant]
     Active Substance: EZETIMIBE
  11. RAPATHA 140 [Concomitant]
  12. ALLERGY INJECTIONS [Concomitant]
  13. BENADRYL [Concomitant]
     Active Substance: DIPHENHYDRAMINE HYDROCHLORIDE
  14. FLUTICASONE PROPIONATE SPRAY [Concomitant]

REACTIONS (4)
  - Product substitution issue [None]
  - Therapeutic response changed [None]
  - Product measured potency issue [None]
  - Inadequate analgesia [None]

NARRATIVE: CASE EVENT DATE: 20190820
